FAERS Safety Report 26150593 (Version 1)
Quarter: 2025Q4

REPORT INFORMATION
  Report Type: Spontaneous
  Country: US (occurrence: None)
  Receive Date: 20251211
  Receipt Date: 20251211
  Transmission Date: 20260118
  Serious: Yes (Life-Threatening, Hospitalization, Disabling)
  Sender: FDA-CTU
  Company Number: None

PATIENT
  Age: 31 Year
  Sex: Female
  Weight: 57.6 kg

DRUGS (10)
  1. MONTELUKAST [Suspect]
     Active Substance: MONTELUKAST
     Dosage: FREQUENCY : AT BEDTIME;
     Route: 048
  2. Albuterol rescue inhaler [Concomitant]
  3. ALBUTEROL [Concomitant]
     Active Substance: ALBUTEROL
  4. BUDESONIDE [Concomitant]
     Active Substance: BUDESONIDE
  5. Zyrtec 20mg [Concomitant]
  6. LEXAPRO [Concomitant]
     Active Substance: ESCITALOPRAM OXALATE
  7. vyvance 20MG [Concomitant]
  8. lo zudimide birth control [Concomitant]
  9. WELLBUTRIN XL [Concomitant]
     Active Substance: BUPROPION HYDROCHLORIDE
  10. IRON [Concomitant]
     Active Substance: IRON

REACTIONS (19)
  - Anxiety [None]
  - Agitation [None]
  - Depression [None]
  - Irritability [None]
  - Restlessness [None]
  - Aggression [None]
  - Confusional state [None]
  - Memory impairment [None]
  - Disturbance in attention [None]
  - Hallucination [None]
  - Abnormal dreams [None]
  - Obsessive-compulsive symptom [None]
  - Influenza like illness [None]
  - Tremor [None]
  - Hypoaesthesia [None]
  - Paraesthesia [None]
  - Ear infection [None]
  - Suicidal ideation [None]
  - Product communication issue [None]

NARRATIVE: CASE EVENT DATE: 20251122
